FAERS Safety Report 5734248-0 (Version None)
Quarter: 2008Q2

REPORT INFORMATION
  Report Type: 
  Country: None (occurrence: None)
  Receive Date: 20080512
  Receipt Date: 20080429
  Transmission Date: 20081010
  Serious: Yes (Hospitalization, Other)
  Sender: FDA-Public Use
  Company Number: US-BAYER-200714834NA

PATIENT
  Age: 59 Year
  Sex: Female
  Weight: 84 kg

DRUGS (32)
  1. BETASERON [Suspect]
     Indication: MULTIPLE SCLEROSIS
     Dosage: TOTAL DAILY DOSE: 8 MIU
     Route: 058
     Dates: start: 20051111
  2. TRAZODONE HCL [Concomitant]
     Indication: FIBROMYALGIA
     Route: 048
  3. TRIAMTERENE AND HYDROCHLOROTHIAZIDE [Concomitant]
     Indication: HYPERTENSION
  4. LASIX (NOS) [Concomitant]
     Indication: HYPERTENSION
     Route: 048
  5. SPIRONOLACTONE [Concomitant]
     Indication: HYPERTENSION
     Route: 048
  6. LOPID [Concomitant]
     Indication: BLOOD CHOLESTEROL INCREASED
     Route: 048
  7. PRAVASTATIN [Concomitant]
     Indication: BLOOD CHOLESTEROL INCREASED
     Route: 048
  8. TAMOXIFEN CITRATE [Concomitant]
     Indication: BREAST CANCER
     Route: 048
  9. SYNTHROID [Concomitant]
     Indication: HYPOTHYROIDISM
     Route: 048
  10. ACTONEL [Concomitant]
     Indication: OSTEOPOROSIS
     Route: 048
  11. ULTRACET [Concomitant]
     Indication: OSTEOPOROSIS
  12. FENTANYL TRANSDERMAL [Concomitant]
     Indication: OSTEOPOROSIS
     Route: 048
  13. REMICADE [Concomitant]
     Indication: OSTEOPOROSIS
     Route: 042
  14. ARAVA [Concomitant]
     Indication: OSTEOPOROSIS
     Route: 048
  15. ROBAXIN (NOS) [Concomitant]
     Indication: OSTEOPOROSIS
     Route: 048
  16. PROTONIX [Concomitant]
     Indication: OSTEOPOROSIS
     Route: 048
  17. LEXAPRO [Concomitant]
     Indication: DEPRESSION
     Route: 048
  18. WELLBUTRIN [Concomitant]
     Indication: DEPRESSION
     Route: 048
  19. SALAGEN [Concomitant]
     Indication: MUCOUS MEMBRANE DISORDER
  20. VAGIFEM [Concomitant]
     Indication: MUCOUS MEMBRANE DISORDER
  21. POTASSIUM CHLORIDE [Concomitant]
     Indication: SUPPLEMENTATION THERAPY
     Route: 048
  22. CALCIUM CITRATE [Concomitant]
     Indication: SUPPLEMENTATION THERAPY
  23. FOLIC ACID [Concomitant]
     Indication: SUPPLEMENTATION THERAPY
     Route: 048
  24. ASCORBIC ACID [Concomitant]
     Indication: SUPPLEMENTATION THERAPY
     Route: 048
  25. MULTIPLE VITAMIN [Concomitant]
     Indication: SUPPLEMENTATION THERAPY
     Route: 048
  26. VITAMIN E [Concomitant]
     Indication: SUPPLEMENTATION THERAPY
     Route: 048
  27. VITAMIN A [Concomitant]
     Indication: SUPPLEMENTATION THERAPY
     Route: 048
  28. SOMA [Concomitant]
     Indication: PAIN
     Route: 048
  29. VALIUM (NOS) [Concomitant]
     Route: 048
  30. PROMETHAZINE [Concomitant]
     Indication: NAUSEA
     Route: 048
  31. MORPHINE SULFATE [Concomitant]
     Route: 048
  32. METHOTREXATE (NOS) [Concomitant]
     Indication: RHEUMATOID ARTHRITIS
     Dates: start: 19990101

REACTIONS (13)
  - CELLULITIS [None]
  - CHOLELITHIASIS [None]
  - DYSKINESIA [None]
  - GAIT DISTURBANCE [None]
  - INFLAMMATION [None]
  - LOWER EXTREMITY MASS [None]
  - MOTOR DYSFUNCTION [None]
  - PAIN IN EXTREMITY [None]
  - POSTOPERATIVE WOUND COMPLICATION [None]
  - PYREXIA [None]
  - RED BLOOD CELL COUNT DECREASED [None]
  - RHEUMATOID NODULE [None]
  - VASCULITIS [None]
